FAERS Safety Report 17600355 (Version 3)
Quarter: 2022Q4

REPORT INFORMATION
  Report Type: Report from Study
  Country: FR (occurrence: FR)
  Receive Date: 20200330
  Receipt Date: 20221212
  Transmission Date: 20230113
  Serious: Yes (Hospitalization)
  Sender: FDA-Public Use
  Company Number: FR-SA-2020SA076147

PATIENT
  Age: 72 Year
  Sex: Female
  Weight: 40 kg

DRUGS (11)
  1. AFLIBERCEPT [Suspect]
     Active Substance: AFLIBERCEPT
     Indication: Colorectal cancer metastatic
     Dosage: UNK UNK, QCY
     Route: 042
     Dates: start: 20191008, end: 20191008
  2. AFLIBERCEPT [Suspect]
     Active Substance: AFLIBERCEPT
     Dosage: UNK UNK, QCY
     Route: 042
     Dates: start: 20190730
  3. IRINOTECAN [Suspect]
     Active Substance: IRINOTECAN
     Indication: Colorectal cancer metastatic
     Dosage: UNK UNK, QCY
     Route: 042
     Dates: start: 20191008, end: 20191008
  4. IRINOTECAN [Suspect]
     Active Substance: IRINOTECAN
     Dosage: UNK UNK, QCY
     Route: 042
     Dates: start: 20190730, end: 20190730
  5. FLUOROURACIL [Suspect]
     Active Substance: FLUOROURACIL
     Indication: Colorectal cancer metastatic
     Dosage: UNK UNK, QCY
     Route: 042
     Dates: start: 20191008, end: 20191008
  6. FLUOROURACIL [Suspect]
     Active Substance: FLUOROURACIL
     Dosage: UNK UNK, QCY
     Route: 042
     Dates: start: 20190730, end: 20190730
  7. LEUCOVORIN [Suspect]
     Active Substance: LEUCOVORIN
     Indication: Colorectal cancer metastatic
     Dosage: UNK UNK, QCY
     Route: 042
     Dates: start: 20191008, end: 20191008
  8. LEUCOVORIN [Suspect]
     Active Substance: LEUCOVORIN
     Dosage: UNK UNK, QCY
     Route: 042
     Dates: start: 20190730, end: 20190730
  9. LEVOTHYROXINE [Concomitant]
     Active Substance: LEVOTHYROXINE
     Indication: Thyroid disorder
     Dosage: 75 MG, QD
     Route: 048
     Dates: start: 20190820
  10. LEVOFLOXACIN [Concomitant]
     Active Substance: LEVOFLOXACIN
     Indication: Thrombosis prophylaxis
     Dosage: 0.4 MG, QD
     Route: 058
     Dates: start: 20191012
  11. DIETARY SUPPLEMENT [Concomitant]
     Active Substance: DIETARY SUPPLEMENT
     Indication: Nutritional supplementation
     Dosage: UNK UNK, BID
     Route: 048
     Dates: start: 20190730

REACTIONS (3)
  - General physical health deterioration [Recovered/Resolved]
  - Discomfort [Recovering/Resolving]
  - Decreased appetite [Recovering/Resolving]

NARRATIVE: CASE EVENT DATE: 20191012
